FAERS Safety Report 14940353 (Version 4)
Quarter: 2018Q2

REPORT INFORMATION
  Report Type: Spontaneous
  Country: US (occurrence: US)
  Receive Date: 20180525
  Receipt Date: 20180627
  Transmission Date: 20180711
  Serious: Yes (Life-Threatening, Hospitalization, Other)
  Sender: FDA-Public Use
  Company Number: US-UNITED THERAPEUTICS-UNT-2018-007399

PATIENT
  Age: 58 Year
  Sex: Female
  Weight: 88.89 kg

DRUGS (6)
  1. REMODULIN [Suspect]
     Active Substance: TREPROSTINIL
     Indication: PULMONARY ARTERIAL HYPERTENSION
     Dosage: 0.012 ?G/KG, CONTINUING
     Route: 041
     Dates: start: 20180615
  2. REVATIO [Concomitant]
     Active Substance: SILDENAFIL CITRATE
     Indication: PRODUCT USED FOR UNKNOWN INDICATION
     Route: 065
  3. LETAIRIS [Concomitant]
     Active Substance: AMBRISENTAN
     Indication: PRODUCT USED FOR UNKNOWN INDICATION
     Route: 065
  4. EPOPROSTENOL TEVA [Concomitant]
     Indication: PRODUCT USED FOR UNKNOWN INDICATION
     Route: 065
  5. TYVASO [Suspect]
     Active Substance: TREPROSTINIL
     Indication: PULMONARY ARTERIAL HYPERTENSION
     Dosage: 60-120 MICROGRAMS, QID
     Dates: start: 20140730, end: 201806
  6. TYVASO [Suspect]
     Active Substance: TREPROSTINIL
     Dosage: 18-54 MICROGRAMS, QID

REACTIONS (5)
  - Dyspnoea exertional [Unknown]
  - Haemodynamic instability [Unknown]
  - Headache [Unknown]
  - Disease progression [Unknown]
  - Off label use [Unknown]

NARRATIVE: CASE EVENT DATE: 2018
